FAERS Safety Report 24876821 (Version 3)
Quarter: 2025Q1

REPORT INFORMATION
  Report Type: Report from Study
  Country: IN (occurrence: IN)
  Receive Date: 20250123
  Receipt Date: 20250221
  Transmission Date: 20250409
  Serious: Yes (Other)
  Sender: ROCHE
  Company Number: IN-ROCHE-10000183012

PATIENT
  Age: 66 Year
  Sex: Male

DRUGS (6)
  1. TECENTRIQ [Suspect]
     Active Substance: ATEZOLIZUMAB
     Indication: Hepatocellular carcinoma
     Route: 040
     Dates: start: 20241128
  2. TECENTRIQ [Suspect]
     Active Substance: ATEZOLIZUMAB
     Route: 040
     Dates: start: 20241128
  3. TECENTRIQ [Suspect]
     Active Substance: ATEZOLIZUMAB
     Route: 040
  4. AVASTIN [Suspect]
     Active Substance: BEVACIZUMAB
     Indication: Hepatocellular carcinoma
     Route: 040
     Dates: start: 20241128
  5. AVASTIN [Suspect]
     Active Substance: BEVACIZUMAB
     Route: 040
     Dates: start: 20241128
  6. AVASTIN [Suspect]
     Active Substance: BEVACIZUMAB
     Route: 040

REACTIONS (5)
  - Off label use [Unknown]
  - Liver disorder [Unknown]
  - Tumour thrombosis [Unknown]
  - Hypotension [Unknown]
  - Jaundice [Unknown]
